FAERS Safety Report 6023656-9 (Version None)
Quarter: 2008Q4

REPORT INFORMATION
  Report Type: 
  Country: None (occurrence: None)
  Receive Date: 20081229
  Receipt Date: 20081229
  Transmission Date: 20090506
  Serious: Yes (Other)
  Sender: FDA-Public Use
  Company Number: None

PATIENT
  Age: 73 Year
  Sex: Male
  Weight: 83.9154 kg

DRUGS (1)
  1. LISINOPRIL [Suspect]
     Indication: HYPERTENSION
     Dosage: 30MG 1XDAY PO
     Route: 048
     Dates: start: 20080301, end: 20081209

REACTIONS (5)
  - ARTHRALGIA [None]
  - HEADACHE [None]
  - PRODUCT QUALITY ISSUE [None]
  - RASH PRURITIC [None]
  - URTICARIA [None]
